FAERS Safety Report 7819453-1 (Version None)
Quarter: 2011Q4

REPORT INFORMATION
  Report Type: 
  Country: None (occurrence: None)
  Receive Date: 20111018
  Receipt Date: 20110328
  Transmission Date: 20120403
  Serious: Yes (Other)
  Sender: FDA-Public Use
  Company Number: US-ASTRAZENECA-2010SE55544

PATIENT
  Sex: Female

DRUGS (2)
  1. SEROQUEL [Suspect]
     Indication: BIPOLAR II DISORDER
     Route: 048
     Dates: start: 20050101, end: 20050101
  2. SYMBICORT [Suspect]
     Route: 055

REACTIONS (6)
  - BLOOD PRESSURE INCREASED [None]
  - LIBIDO DECREASED [None]
  - FEELING HOT [None]
  - WEIGHT INCREASED [None]
  - CONVULSION [None]
  - BACK DISORDER [None]
